FAERS Safety Report 12715138 (Version 1)
Quarter: 2016Q3

REPORT INFORMATION
  Report Type: Spontaneous
  Country: US (occurrence: US)
  Receive Date: 20160905
  Receipt Date: 20160905
  Transmission Date: 20161109
  Serious: No
  Sender: FDA-Public Use
  Company Number: US-ASTRAZENECA-2016SE44104

PATIENT
  Sex: Female
  Weight: 181.4 kg

DRUGS (4)
  1. OTHER MEDICATIONS [Suspect]
     Active Substance: UNSPECIFIED INGREDIENT
     Route: 065
  2. SEROQUEL XR [Suspect]
     Active Substance: QUETIAPINE FUMARATE
     Dosage: SEROQUEL
     Route: 048
     Dates: start: 2004
  3. SEROQUEL XR [Suspect]
     Active Substance: QUETIAPINE FUMARATE
     Route: 048
  4. SEROQUEL XR [Suspect]
     Active Substance: QUETIAPINE FUMARATE
     Route: 048

REACTIONS (9)
  - Lethargy [Unknown]
  - Weight increased [Unknown]
  - Glucose tolerance impaired [Unknown]
  - Back disorder [Unknown]
  - Somnolence [Unknown]
  - Weight decreased [Unknown]
  - Depression [Unknown]
  - Cardiac failure [Unknown]
  - Joint injury [Unknown]
